FAERS Safety Report 14921731 (Version 2)
Quarter: 2018Q2

REPORT INFORMATION
  Report Type: Spontaneous
  Country: DE (occurrence: DE)
  Receive Date: 20180522
  Receipt Date: 20180529
  Transmission Date: 20180711
  Serious: Yes (Death, Life-Threatening)
  Sender: FDA-Public Use
  Company Number: DE-TORRENT-00008449

PATIENT
  Age: 48 Year
  Sex: Female
  Weight: 70 kg

DRUGS (5)
  1. METAMIZOL [Suspect]
     Active Substance: METAMIZOLE SODIUM
     Indication: PAIN
     Dosage: UNKNOWN
     Route: 048
     Dates: start: 20170701
  2. TILIDINE [Concomitant]
     Active Substance: TILIDINE
     Indication: PAIN
     Dosage: UNKNOWN
     Route: 048
  3. PANTOPRAZOL [Suspect]
     Active Substance: PANTOPRAZOLE SODIUM
     Indication: PRODUCT USED FOR UNKNOWN INDICATION
     Dosage: UNKNOWN
  4. FRAGMIN P FORTE [Concomitant]
     Active Substance: DALTEPARIN SODIUM
     Indication: PRODUCT USED FOR UNKNOWN INDICATION
     Dosage: UNKNOWN
  5. IBUPROFEN. [Concomitant]
     Active Substance: IBUPROFEN
     Indication: PAIN
     Dosage: UNKNOWN
     Route: 048

REACTIONS (3)
  - Stevens-Johnson syndrome [Not Recovered/Not Resolved]
  - Product substitution issue [Unknown]
  - Toxic epidermal necrolysis [Not Recovered/Not Resolved]

NARRATIVE: CASE EVENT DATE: 20170701
